FAERS Safety Report 10162455 (Version 2)
Quarter: 2014Q2

REPORT INFORMATION
  Report Type: Spontaneous
  Country: FR (occurrence: FR)
  Receive Date: 20140509
  Receipt Date: 20140509
  Transmission Date: 20141212
  Serious: Yes (Hospitalization, Other)
  Sender: FDA-Public Use
  Company Number: FR-SA-200911432FR

PATIENT
  Age: 57 Year
  Sex: Female
  Weight: 128 kg

DRUGS (9)
  1. TRIATEC [Suspect]
     Indication: CARDIAC FAILURE
     Route: 048
     Dates: start: 200501
  2. LASILIX [Suspect]
     Indication: PRODUCT USED FOR UNKNOWN INDICATION
     Route: 048
     Dates: start: 200501
  3. DI-ANTALVIC [Suspect]
     Indication: PRODUCT USED FOR UNKNOWN INDICATION
     Route: 048
     Dates: start: 200501
  4. MEDIATOR [Suspect]
     Indication: DIABETES MELLITUS
     Dosage: DOSE UNIT: 150 MG
     Route: 048
     Dates: start: 20030820, end: 20060807
  5. FORADIL [Suspect]
     Indication: UNEVALUABLE EVENT
     Dosage: DOSE UNIT: 12 UG
     Route: 055
     Dates: start: 200501
  6. PAROXETINE [Suspect]
     Indication: DEPRESSION
     Route: 065
     Dates: start: 2005, end: 2007
  7. XANAX [Suspect]
     Indication: UNEVALUABLE EVENT
     Route: 048
     Dates: start: 200501
  8. DIFFU K [Suspect]
     Indication: UNEVALUABLE EVENT
     Dosage: DOSE UNIT: 600 MG
     Route: 048
     Dates: start: 200501
  9. LEVOTHYROX [Suspect]
     Indication: UNEVALUABLE EVENT
     Route: 048
     Dates: start: 200501

REACTIONS (3)
  - Ejection fraction decreased [Not Recovered/Not Resolved]
  - Mitral valve incompetence [Not Recovered/Not Resolved]
  - Pulmonary arterial hypertension [Not Recovered/Not Resolved]
